FAERS Safety Report 24536043 (Version 1)
Quarter: 2024Q4

REPORT INFORMATION
  Report Type: Report from Study
  Country: US (occurrence: US)
  Receive Date: 20241022
  Receipt Date: 20241022
  Transmission Date: 20250115
  Serious: Yes (Other)
  Sender: JAZZ
  Company Number: US-JAZZ PHARMACEUTICALS-2024-US-015506

PATIENT
  Age: 63 Year
  Sex: Female

DRUGS (20)
  1. XYWAV [Suspect]
     Active Substance: CALCIUM OXYBATE\MAGNESIUM OXYBATE\POTASSIUM OXYBATE\SODIUM OXYBATE
     Indication: Narcolepsy
  2. XYWAV [Suspect]
     Active Substance: CALCIUM OXYBATE\MAGNESIUM OXYBATE\POTASSIUM OXYBATE\SODIUM OXYBATE
     Indication: Cataplexy
  3. XYWAV [Suspect]
     Active Substance: CALCIUM OXYBATE\MAGNESIUM OXYBATE\POTASSIUM OXYBATE\SODIUM OXYBATE
     Indication: Somnolence
  4. LEVOTHYROXINE [Concomitant]
     Active Substance: LEVOTHYROXINE
     Indication: Product used for unknown indication
     Dosage: UNK
     Dates: start: 20141125
  5. VALTREX [Concomitant]
     Active Substance: VALACYCLOVIR HYDROCHLORIDE
     Indication: Product used for unknown indication
     Dosage: 0010
     Dates: start: 20141125
  6. FLUOROMETHOLONE [Concomitant]
     Active Substance: FLUOROMETHOLONE
     Indication: Product used for unknown indication
     Dosage: 0000 FREQUENCY: OTH
     Dates: start: 20141125
  7. TRIAMCINOLONE [Concomitant]
     Active Substance: TRIAMCINOLONE
     Indication: Product used for unknown indication
     Dosage: 0010 FREQUENCY: OTH
     Dates: start: 20141125
  8. CICLOPIROX [Concomitant]
     Active Substance: CICLOPIROX
     Indication: Product used for unknown indication
     Dosage: 0000 FREQUENCY: Q3D
     Dates: start: 20141125
  9. KENALOG [Concomitant]
     Active Substance: TRIAMCINOLONE ACETONIDE
     Indication: Product used for unknown indication
     Dosage: 0000 FREQUENCY: OTH
     Dates: start: 20141125
  10. HALOBETASOL PROP [Concomitant]
     Indication: Product used for unknown indication
     Dosage: 0000
     Dates: start: 20141125
  11. HYDROCORTISONE [Concomitant]
     Active Substance: HYDROCORTISONE
     Dosage: 0000 FREQUENCY: OTH
     Dates: start: 20141125
  12. COZAAR [Concomitant]
     Active Substance: LOSARTAN POTASSIUM
     Indication: Product used for unknown indication
     Dosage: 0000
     Dates: start: 20150710
  13. NASACORT ALLERGY 24HR [Concomitant]
     Active Substance: TRIAMCINOLONE ACETONIDE
     Indication: Product used for unknown indication
     Dosage: 0000
     Dates: start: 20150918
  14. IPRATROPIUM [Concomitant]
     Active Substance: IPRATROPIUM
     Indication: Product used for unknown indication
     Dosage: 0000
     Dates: start: 20150918
  15. VITAMIN D3 [Concomitant]
     Active Substance: CHOLECALCIFEROL
     Indication: Product used for unknown indication
     Dosage: 0000
     Dates: start: 20151020
  16. PROBIOTIC ACIDOPHILUS [LACTOBACILLUS ACIDOPHILUS] [Concomitant]
     Indication: Product used for unknown indication
     Dosage: 0000
     Dates: start: 20151020
  17. MAGNESIUM OXIDE [Concomitant]
     Active Substance: MAGNESIUM OXIDE
     Indication: Product used for unknown indication
     Dosage: 0000
     Dates: start: 20151020
  18. MOMETASONE FUROATE [Concomitant]
     Active Substance: MOMETASONE FUROATE
     Indication: Product used for unknown indication
     Dosage: 0000
     Dates: start: 20151020
  19. ACETAMINOPHEN\CODEINE PHOSPHATE [Concomitant]
     Active Substance: ACETAMINOPHEN\CODEINE PHOSPHATE
     Indication: Product used for unknown indication
     Dosage: 0000
     Dates: start: 20240826
  20. PREGABALIN [Concomitant]
     Active Substance: PREGABALIN
     Dosage: 0000
     Dates: start: 20240826

REACTIONS (3)
  - Appendicectomy [Unknown]
  - Cataract operation [Unknown]
  - Bursitis [Unknown]

NARRATIVE: CASE EVENT DATE: 20240101
